FAERS Safety Report 5075579-X (Version None)
Quarter: 2006Q3

REPORT INFORMATION
  Report Type: 
  Country: None (occurrence: None)
  Receive Date: 20060809
  Receipt Date: 20060706
  Transmission Date: 20061208
  Serious: Yes (Death, Hospitalization)
  Sender: FDA-Public Use
  Company Number: DE-ROCHE-454347

PATIENT
  Age: 80 Year
  Sex: Female
  Weight: 61 kg

DRUGS (9)
  1. CAPECITABINE [Suspect]
     Indication: COLORECTAL CANCER
     Route: 065
     Dates: start: 20060519
  2. CAPECITABINE [Suspect]
     Route: 065
     Dates: end: 20060612
  3. DIGITOXIN [Concomitant]
  4. BELOC ZOK MITE [Concomitant]
  5. DIOVAN [Concomitant]
  6. TORSEMIDE [Concomitant]
  7. ALLOPURINOL [Concomitant]
  8. PANTOZOL [Concomitant]
  9. NOVAMIN [Concomitant]

REACTIONS (9)
  - ABDOMINAL PAIN LOWER [None]
  - ACUTE PRERENAL FAILURE [None]
  - DEHYDRATION [None]
  - DIARRHOEA [None]
  - HYPERKALAEMIA [None]
  - HYPERNATRAEMIA [None]
  - HYPERTENSION [None]
  - ILEUS [None]
  - PERITONITIS [None]
